FAERS Safety Report 7833851-1 (Version None)
Quarter: 2011Q4

REPORT INFORMATION
  Report Type: 
  Country: None (occurrence: None)
  Receive Date: 20111024
  Receipt Date: 20111013
  Transmission Date: 20120403
  Serious: Yes (Hospitalization)
  Sender: FDA-Public Use
  Company Number: FR-GLAXOSMITHKLINE-B0755028A

PATIENT
  Sex: Male

DRUGS (5)
  1. ONCOVIN [Suspect]
     Indication: MEDULLOBLASTOMA
     Route: 042
     Dates: start: 20111004, end: 20111004
  2. BICNU [Suspect]
     Indication: MEDULLOBLASTOMA
     Route: 042
     Dates: start: 20111004, end: 20111004
  3. ZOFRAN [Suspect]
     Indication: PREMEDICATION
     Route: 042
     Dates: start: 20111004, end: 20111004
  4. EMEND [Suspect]
     Indication: PREMEDICATION
     Route: 048
     Dates: start: 20111003, end: 20111003
  5. PLITICAN [Suspect]
     Indication: PREMEDICATION
     Route: 042
     Dates: start: 20111003, end: 20111003

REACTIONS (2)
  - DYSAESTHESIA [None]
  - TONGUE OEDEMA [None]
